FAERS Safety Report 7415229-8 (Version None)
Quarter: 2011Q2

REPORT INFORMATION
  Report Type: 
  Country: None (occurrence: None)
  Receive Date: 20110414
  Receipt Date: 20110411
  Transmission Date: 20111010
  Serious: Yes (Death, Hospitalization, Other)
  Sender: FDA-Public Use
  Company Number: PHHY2010MX51924

PATIENT
  Sex: Male

DRUGS (1)
  1. CO-DIOVAN [Suspect]
     Dosage: 1 DF, 1 TABLET (160/25 MG) DAILY
     Route: 048
     Dates: start: 20090501, end: 20100520

REACTIONS (5)
  - RESPIRATORY FAILURE [None]
  - ANAEMIA [None]
  - ABDOMINAL NEOPLASM [None]
  - METASTATIC MALIGNANT MELANOMA [None]
  - COMA [None]
